FAERS Safety Report 9947771 (Version 2)
Quarter: 2014Q1

REPORT INFORMATION
  Report Type: Spontaneous
  Country: PR (occurrence: PR)
  Receive Date: 20140303
  Receipt Date: 20140303
  Transmission Date: 20141002
  Serious: No
  Sender: FDA-Public Use
  Company Number: PR-ABBVIE-12P-131-0967467-00

PATIENT
  Sex: Female
  Weight: 62.65 kg

DRUGS (10)
  1. HUMIRA 40 MG/0.8 ML PEN [Suspect]
     Indication: RHEUMATOID ARTHRITIS
     Route: 058
     Dates: start: 2011
  2. HUMIRA 40 MG/0.8 ML PEN [Suspect]
     Route: 058
     Dates: start: 20130131, end: 20130218
  3. HUMIRA 40 MG/0.8 ML PEN [Suspect]
     Dates: start: 20130314
  4. DICLOFENAC POTASSIUM [Concomitant]
     Indication: PAIN
     Route: 048
  5. DICLOFENAC POTASSIUM [Concomitant]
     Indication: RHEUMATOID ARTHRITIS
  6. ADVIL [Concomitant]
     Indication: PRODUCT USED FOR UNKNOWN INDICATION
     Route: 048
  7. GABAPENTIN [Concomitant]
     Indication: PRODUCT USED FOR UNKNOWN INDICATION
     Route: 048
  8. PATCH [Concomitant]
     Indication: BACK PAIN
     Route: 061
  9. NORFLEX [Concomitant]
     Indication: BACK PAIN
     Route: 048
  10. ANTI-INFLAMMATORY [Concomitant]
     Indication: MUSCLE SPASMS
     Route: 048

REACTIONS (4)
  - Constipation [Unknown]
  - Pain [Recovered/Resolved]
  - Fall [Unknown]
  - Contusion [Unknown]
